FAERS Safety Report 17696004 (Version 1)
Quarter: 2020Q2

REPORT INFORMATION
  Report Type: Spontaneous
  Country: US (occurrence: US)
  Receive Date: 20200422
  Receipt Date: 20200422
  Transmission Date: 20200714
  Serious: Yes (Other)
  Sender: FDA-Public Use
  Company Number: US-NAPPMUNDI-USA-2019-0148759

PATIENT
  Sex: Male

DRUGS (3)
  1. XANAX [Suspect]
     Active Substance: ALPRAZOLAM
     Indication: PRODUCT USED FOR UNKNOWN INDICATION
     Dosage: 1 MG, QID
     Route: 048
  2. OXYCONTIN [Suspect]
     Active Substance: OXYCODONE HYDROCHLORIDE
     Indication: PAIN
     Dosage: 80 MG, BID
     Route: 048
     Dates: start: 1995, end: 1998
  3. MS CONTIN [Suspect]
     Active Substance: MORPHINE SULFATE
     Indication: PAIN
     Dosage: 100 MG, QID
     Route: 048
     Dates: start: 1998

REACTIONS (16)
  - Therapeutic product effect decreased [Recovered/Resolved]
  - Skin irritation [Unknown]
  - Inadequate analgesia [Recovered/Resolved]
  - Unevaluable event [Recovered/Resolved]
  - Drug withdrawal syndrome [Not Recovered/Not Resolved]
  - Loss of personal independence in daily activities [Recovered/Resolved]
  - Speech disorder [Recovering/Resolving]
  - Euphoric mood [Recovered/Resolved]
  - Bruxism [Not Recovered/Not Resolved]
  - Drug dependence [Unknown]
  - Formication [Not Recovered/Not Resolved]
  - Malaise [Recovered/Resolved]
  - Mental impairment [Not Recovered/Not Resolved]
  - Chills [Not Recovered/Not Resolved]
  - Product quality issue [Unknown]
  - Anal incontinence [Not Recovered/Not Resolved]

NARRATIVE: CASE EVENT DATE: 1995
